FAERS Safety Report 6494446-8 (Version None)
Quarter: 2009Q4

REPORT INFORMATION
  Report Type: 
  Country: None (occurrence: None)
  Receive Date: 20091214
  Receipt Date: 20090219
  Transmission Date: 20100525
  Serious: No
  Sender: FDA-Public Use
  Company Number: US-BRISTOL-MYERS SQUIBB COMPANY-14513238

PATIENT
  Age: 63 Year
  Sex: Male

DRUGS (3)
  1. ABILIFY [Suspect]
     Indication: MAJOR DEPRESSION
     Route: 048
     Dates: start: 20081201, end: 20090201
  2. TIAZAC [Concomitant]
  3. PRISTIQ [Concomitant]

REACTIONS (1)
  - BLOOD PRESSURE INCREASED [None]
